FAERS Safety Report 8575474-5 (Version None)
Quarter: 2012Q3

REPORT INFORMATION
  Report Type: 
  Country: None (occurrence: None)
  Receive Date: 20120807
  Receipt Date: 20120730
  Transmission Date: 20120928
  Serious: No
  Sender: FDA-Public Use
  Company Number: US-B.I. PHARMACEUTICALS,INC./RIDGEFIELD-2012-BP-14618BP

PATIENT
  Sex: Female

DRUGS (1)
  1. ZANTAC [Suspect]
     Indication: DYSPEPSIA
     Dosage: 300 MG
     Route: 048
     Dates: start: 20120601, end: 20120601

REACTIONS (1)
  - DRUG INEFFECTIVE [None]
